FAERS Safety Report 13007178 (Version 1)
Quarter: 2016Q4

REPORT INFORMATION
  Report Type: Spontaneous
  Country: GB (occurrence: GB)
  Receive Date: 20161207
  Receipt Date: 20161207
  Transmission Date: 20170207
  Serious: Yes (Death)
  Sender: FDA-Public Use
  Company Number: GB-TEVA-717479ACC

PATIENT
  Sex: Male

DRUGS (2)
  1. ADVAGRAF [Suspect]
     Active Substance: TACROLIMUS
  2. PREDNISOLONE 5MG TAB 28 ALM [Suspect]
     Active Substance: PREDNISOLONE

REACTIONS (1)
  - Death [Fatal]
